FAERS Safety Report 18894494 (Version 1)
Quarter: 2021Q1

REPORT INFORMATION
  Report Type: Spontaneous
  Country: US (occurrence: US)
  Receive Date: 20210215
  Receipt Date: 20210215
  Transmission Date: 20210420
  Serious: Yes (Other)
  Sender: FDA-Public Use
  Company Number: US-TAKEDA-2021TUS007480

PATIENT
  Sex: Female
  Weight: 63.49 kg

DRUGS (2)
  1. LIALDA [Suspect]
     Active Substance: MESALAMINE
     Indication: COLITIS ULCERATIVE
     Dosage: 2 DOSAGE FORM, QD
     Route: 065
  2. LIALDA [Suspect]
     Active Substance: MESALAMINE
     Dosage: 1.2 GRAM, BID
     Route: 065

REACTIONS (3)
  - Colitis ulcerative [Unknown]
  - Back pain [Unknown]
  - Inappropriate schedule of product administration [Unknown]
